FAERS Safety Report 20420462 (Version 2)
Quarter: 2022Q2

REPORT INFORMATION
  Report Type: Spontaneous
  Country: AT (occurrence: AT)
  Receive Date: 20220203
  Receipt Date: 20220628
  Transmission Date: 20220721
  Serious: No
  Sender: FDA-Public Use
  Company Number: AT-GSKCCFEMEA-Case-01410914_AE-54365

PATIENT

DRUGS (3)
  1. SOTROVIMAB [Suspect]
     Active Substance: SOTROVIMAB
     Indication: Prophylaxis
     Dosage: UNK
  2. COVID-19 VACCINE [Concomitant]
     Indication: Prophylaxis
     Dosage: UNK
  3. RITUXIMAB [Concomitant]
     Active Substance: RITUXIMAB
     Indication: Neurological symptom
     Dosage: UNK

REACTIONS (2)
  - COVID-19 prophylaxis [Unknown]
  - Off label use [Unknown]
